FAERS Safety Report 5688970-5 (Version None)
Quarter: 2008Q1

REPORT INFORMATION
  Report Type: 
  Country: None (occurrence: None)
  Receive Date: 20080331
  Receipt Date: 20061129
  Transmission Date: 20080703
  Serious: Yes (Death, Hospitalization, Other)
  Sender: FDA-Public Use
  Company Number: FR-ROCHE-473339

PATIENT
  Age: 69 Year
  Sex: Male

DRUGS (9)
  1. VALIUM [Suspect]
     Dosage: OTHER INDICATION: AGGRESSIVENESS
     Route: 048
     Dates: end: 20060811
  2. AUGMENTIN '125' [Concomitant]
     Dosage: DRUG REPORTED AS 'AUGMENTIN 1G/200MG'.
     Route: 042
     Dates: start: 20060810, end: 20060814
  3. LOVENOX [Concomitant]
     Dosage: DRUG REPORTED AS 'LOVENOX 40/0.4ML'.
     Route: 058
     Dates: start: 20060806, end: 20060814
  4. EUPANTOL [Concomitant]
     Dosage: DRUG REPORTED AS 'EUPANTOL 40'.
  5. LOXEN [Concomitant]
     Dosage: DRUG REPORTED AS 'LOXEN 50'
  6. SEROPRAM [Concomitant]
  7. SERESTA [Concomitant]
     Dosage: DRUG REPORTED AS 'SERESTA 50'
  8. ESPERAL [Concomitant]
  9. STILNOX [Concomitant]

REACTIONS (3)
  - DEATH [None]
  - OVERDOSE [None]
  - PNEUMONIA [None]
